FAERS Safety Report 13780229 (Version 1)
Quarter: 2017Q3

REPORT INFORMATION
  Report Type: Spontaneous
  Country: GB (occurrence: GB)
  Receive Date: 20170724
  Receipt Date: 20170724
  Transmission Date: 20171127
  Serious: Yes (Other)
  Sender: FDA-Public Use
  Company Number: GB-DEXPHARM-20170868

PATIENT
  Sex: Female

DRUGS (18)
  1. AMIODARONE [Suspect]
     Active Substance: AMIODARONE
  2. COCODAMOL [Suspect]
     Active Substance: ACETAMINOPHEN\CODEINE PHOSPHATE
     Dosage: DOSE: 30/500MGS 4X DAILY
  3. NEBIVOLOL. [Suspect]
     Active Substance: NEBIVOLOL
  4. SALBUTAMOL [Concomitant]
     Active Substance: ALBUTEROL
     Indication: COUGH
     Dosage: 2 PUFFS
     Route: 055
  5. ASPIRIN. [Concomitant]
     Active Substance: ASPIRIN
  6. LYRICA [Concomitant]
     Active Substance: PREGABALIN
  7. ASPIRIN. [Suspect]
     Active Substance: ASPIRIN
  8. SALBUTAMOL [Suspect]
     Active Substance: ALBUTEROL
  9. CLOPIDOGREL [Suspect]
     Active Substance: CLOPIDOGREL BISULFATE
  10. LANSOPRAZOLE. [Suspect]
     Active Substance: LANSOPRAZOLE
  11. FLUTIUM-D3 [Concomitant]
     Dosage: DOSE: 800 UNIT(S)
  12. FULTIUM-D3 [Suspect]
     Active Substance: CHOLECALCIFEROL
     Dosage: DOSE:800 UNIT(S)
  13. NEBIVOLOL. [Concomitant]
     Active Substance: NEBIVOLOL
  14. PERINDOPRIL [Concomitant]
     Active Substance: PERINDOPRIL
  15. FABRAZYME [Suspect]
     Active Substance: AGALSIDASE BETA
     Dosage: 50MG (GIVEN AS 35MG + 15MG), FORTNIGHTLY. (35MG C578H24,30/11/201 8? 15MG E6002H01, 31/01/2019)
     Route: 041
  16. PERINDOPRIL [Suspect]
     Active Substance: PERINDOPRIL
  17. CITALOPRAM [Suspect]
     Active Substance: CITALOPRAM HYDROBROMIDE
  18. LYRICA [Suspect]
     Active Substance: PREGABALIN

REACTIONS (3)
  - Lower respiratory tract infection [Unknown]
  - Wheezing [Unknown]
  - Cough [Recovered/Resolved]
